FAERS Safety Report 21002750 (Version 1)
Quarter: 2022Q2

REPORT INFORMATION
  Report Type: Spontaneous
  Country: US (occurrence: US)
  Receive Date: 20220624
  Receipt Date: 20220624
  Transmission Date: 20220721
  Serious: No
  Sender: FDA-Public Use
  Company Number: US-BioHaven Pharmaceuticals-2022BHV001374

PATIENT
  Age: 43 Year
  Sex: Female
  Weight: 120.31 kg

DRUGS (1)
  1. NURTEC ODT [Suspect]
     Active Substance: RIMEGEPANT SULFATE
     Indication: Migraine
     Dosage: MAXIMUM 1 TABLET PER DAY
     Route: 048
     Dates: start: 202203, end: 202205

REACTIONS (1)
  - Drug ineffective [Unknown]
